FAERS Safety Report 17158586 (Version 2)
Quarter: 2020Q1

REPORT INFORMATION
  Report Type: Spontaneous
  Country: FR (occurrence: FR)
  Receive Date: 20191216
  Receipt Date: 20200302
  Transmission Date: 20200409
  Serious: Yes (Other)
  Sender: FDA-Public Use
  Company Number: FR-TEVA-2019-FR-1154079

PATIENT
  Age: 33 Year
  Sex: Female

DRUGS (1)
  1. COPAXONE [Suspect]
     Active Substance: GLATIRAMER ACETATE
     Indication: MULTIPLE SCLEROSIS
     Dosage: SINCE ONE A HALF YEAR
     Dates: start: 20180301, end: 20191212

REACTIONS (5)
  - Asthenia [Unknown]
  - Urticaria [Recovering/Resolving]
  - Diarrhoea [Unknown]
  - Face oedema [Unknown]
  - Chest discomfort [Unknown]

NARRATIVE: CASE EVENT DATE: 20191210
